FAERS Safety Report 15294035 (Version 1)
Quarter: 2018Q3

REPORT INFORMATION
  Report Type: Spontaneous
  Country: US (occurrence: US)
  Receive Date: 20180807
  Receipt Date: 20180807
  Transmission Date: 20181010
  Serious: No
  Sender: FDA-Public Use
  Company Number: None

PATIENT
  Age: 24 Year
  Sex: Female
  Weight: 49.5 kg

DRUGS (5)
  1. CAMRESE LO [Suspect]
     Active Substance: ETHINYL ESTRADIOL\LEVONORGESTREL
     Indication: CONTRACEPTION
     Dosage: ?          QUANTITY:92 DF DOSAGE FORM;?
     Route: 048
  2. VITAMIN D3 [Concomitant]
     Active Substance: CHOLECALCIFEROL
  3. LORATADINE. [Concomitant]
     Active Substance: LORATADINE
  4. NASACORT [Concomitant]
     Active Substance: TRIAMCINOLONE ACETONIDE
  5. CITALOPRAM [Concomitant]
     Active Substance: CITALOPRAM HYDROBROMIDE

REACTIONS (1)
  - Amenorrhoea [None]

NARRATIVE: CASE EVENT DATE: 20180730
